FAERS Safety Report 4394751-5 (Version None)
Quarter: 2004Q3

REPORT INFORMATION
  Report Type: 
  Country: None (occurrence: None)
  Receive Date: 20040706
  Receipt Date: 20040622
  Transmission Date: 20050211
  Serious: Yes (Hospitalization)
  Sender: FDA-Public Use
  Company Number: HQ8414114NOV2001

PATIENT
  Age: 27 Year
  Sex: Male

DRUGS (4)
  1. MINOCIN [Suspect]
     Indication: ACNE
     Dosage: 100 MG 1X PER 1 DAY ORAL
     Route: 048
     Dates: start: 20010901, end: 20010101
  2. CUTACNYL (BENZOYL PEROXIDE) [Concomitant]
  3. DIFFERINE (ADAPALENE) [Concomitant]
  4. PROTEIN SUPPLEMENTS (PROTEIN SUPPLEMENTS) [Concomitant]

REACTIONS (4)
  - BLOOD IMMUNOGLOBULIN M INCREASED [None]
  - BLOOD LACTATE DEHYDROGENASE INCREASED [None]
  - LYMPHOMATOID PAPULOSIS [None]
  - PARATRACHEAL LYMPHADENOPATHY [None]
